FAERS Safety Report 23393689 (Version 2)
Quarter: 2025Q4

REPORT INFORMATION
  Report Type: Spontaneous
  Country: US (occurrence: US)
  Receive Date: 20240111
  Receipt Date: 20251031
  Transmission Date: 20260118
  Serious: Yes (Other)
  Sender: PFIZER
  Company Number: US-PFIZER INC-202400003858

PATIENT
  Age: 57 Year
  Sex: Female

DRUGS (1)
  1. XELJANZ XR [Suspect]
     Active Substance: TOFACITINIB CITRATE
     Dosage: 11 MG
     Dates: start: 202312

REACTIONS (4)
  - Autoimmune disorder [Unknown]
  - Arthropathy [Unknown]
  - Muscle disorder [Unknown]
  - Nasopharyngitis [Not Recovered/Not Resolved]
